FAERS Safety Report 9103975 (Version 2)
Quarter: 2013Q3

REPORT INFORMATION
  Report Type: Spontaneous
  Country: GB (occurrence: GB)
  Receive Date: 20130219
  Receipt Date: 20130731
  Transmission Date: 20140515
  Serious: Yes (Disabling)
  Sender: FDA-Public Use
  Company Number: GB-JNJFOC-20130207583

PATIENT
  Age: 56 Year
  Sex: Female
  Weight: 59.8 kg

DRUGS (7)
  1. REMICADE [Suspect]
     Indication: CROHN^S DISEASE
     Route: 042
     Dates: start: 201205, end: 201301
  2. REMICADE [Suspect]
     Indication: CROHN^S DISEASE
     Route: 042
     Dates: start: 201111, end: 201112
  3. PETHIDINE [Concomitant]
     Indication: ABDOMINAL PAIN
     Dosage: STARTED BEFORE JUN-2011, EVERY OTHER DAY
     Route: 065
  4. TEMAZEPAM [Concomitant]
     Indication: ANXIETY
     Dosage: AT NIGHT
     Route: 065
  5. TEMAZEPAM [Concomitant]
     Indication: INSOMNIA
     Dosage: AT NIGHT
     Route: 065
  6. DIAZEPAM [Concomitant]
     Indication: ANXIETY
     Dosage: UPTO 30 MG DAILY, AS NECESSARY
     Route: 065
  7. DIAZEPAM [Concomitant]
     Indication: INSOMNIA
     Dosage: UPTO 30 MG DAILY, AS NECESSARY
     Route: 065

REACTIONS (2)
  - Suicidal ideation [Recovered/Resolved]
  - Depressed mood [Unknown]
